FAERS Safety Report 5151558-9 (Version None)
Quarter: 2006Q4

REPORT INFORMATION
  Report Type: 
  Country: None (occurrence: None)
  Receive Date: 20061109
  Receipt Date: 20061026
  Transmission Date: 20070319
  Serious: Yes (Other)
  Sender: FDA-Public Use
  Company Number: 13914

PATIENT
  Age: 51 Year
  Sex: Male
  Weight: 122.4712 kg

DRUGS (10)
  1. METHOTREXATE [Suspect]
  2. TRISENOX [Suspect]
     Indication: MULTIPLE MYELOMA
  3. ASCORBIC ACID [Suspect]
  4. ADRIAMYCIN PFS [Suspect]
  5. CYTOXAN [Suspect]
  6. DECADRON [Suspect]
     Dosage: 40 MG OTH
     Route: 050
  7. COREG [Concomitant]
  8. DIOVAN [Concomitant]
  9. COUMADIN [Concomitant]
  10. PRAVACHOL [Concomitant]

REACTIONS (2)
  - CATARACT [None]
  - INCORRECT DOSE ADMINISTERED [None]
